FAERS Safety Report 6832217-0 (Version None)
Quarter: 2010Q3

REPORT INFORMATION
  Report Type: 
  Country: None (occurrence: None)
  Receive Date: 20100707
  Receipt Date: 20100625
  Transmission Date: 20110219
  Serious: Yes (Hospitalization)
  Sender: FDA-Public Use
  Company Number: 2010EU002951

PATIENT
  Age: 51 Year
  Sex: Female
  Weight: 65 kg

DRUGS (10)
  1. PROGRAF [Suspect]
     Indication: RENAL TRANSPLANT
     Dosage: 1 MG, BID, ORAL
     Route: 048
     Dates: start: 20070701
  2. CELLCEPT [Suspect]
     Indication: RENAL TRANSPLANT
     Dosage: 500 MG BID, ORAL
     Route: 048
     Dates: start: 20070701
  3. AVELOX [Suspect]
     Indication: BRONCHITIS
     Dosage: 400 MG, UID/QD, ORAL 250 MG, BID, ORAL
     Route: 048
     Dates: start: 20100607, end: 20100607
  4. AVELOX [Suspect]
     Indication: BRONCHITIS
     Dosage: 400 MG, UID/QD, ORAL 250 MG, BID, ORAL
     Route: 048
     Dates: start: 20100608
  5. RAMIPRIL [Concomitant]
  6. THYRONAJOD (LEVOTHYROXINE SODIUM POTASSIUM OXIDE) [Concomitant]
  7. FLUVASTATIN SODIUM [Concomitant]
  8. PANTOPRAZOLE SODIUM [Concomitant]
  9. ADVAIR DISKUS 100/50 [Concomitant]
  10. DEKRISTOL (COLECALCIFEROL) [Concomitant]

REACTIONS (11)
  - ANXIETY [None]
  - BRONCHITIS VIRAL [None]
  - CYTOMEGALOVIRUS INFECTION [None]
  - DRUG INTOLERANCE [None]
  - FEAR OF DEATH [None]
  - LEUKOPENIA [None]
  - PALLOR [None]
  - PARAESTHESIA [None]
  - PLEURISY [None]
  - TACHYCARDIA [None]
  - TREMOR [None]
